FAERS Safety Report 16764192 (Version 1)
Quarter: 2019Q3

REPORT INFORMATION
  Report Type: Spontaneous
  Country: US (occurrence: US)
  Receive Date: 20190902
  Receipt Date: 20190902
  Transmission Date: 20191005
  Serious: No
  Sender: FDA-Public Use
  Company Number: US-GLAXOSMITHKLINE-A0771110A

PATIENT
  Age: 18 Year
  Sex: Male
  Weight: 25.5 kg

DRUGS (2)
  1. TYLENOL EXTRA STRENGTH [Concomitant]
     Active Substance: ACETAMINOPHEN
     Route: 048
  2. RELENZA [Suspect]
     Active Substance: ZANAMIVIR
     Indication: PRODUCT USED FOR UNKNOWN INDICATION
     Route: 055
     Dates: start: 20090225, end: 20090227

REACTIONS (3)
  - Hypersensitivity [Unknown]
  - Rash generalised [Unknown]
  - Flushing [Unknown]

NARRATIVE: CASE EVENT DATE: 20090227
